FAERS Safety Report 5802483-9 (Version None)
Quarter: 2008Q2

REPORT INFORMATION
  Report Type: 
  Country: None (occurrence: None)
  Receive Date: 20080627
  Receipt Date: 20080624
  Transmission Date: 20081010
  Serious: Yes (Other)
  Sender: FDA-Public Use
  Company Number: THYM-1000706

PATIENT
  Sex: Female

DRUGS (9)
  1. THYMOGLOBULIN [Suspect]
     Indication: KIDNEY TRANSPLANT REJECTION
     Dosage: 1.5 MG/KG, QD, INTRAVENOUS
     Route: 042
  2. PREDNISONE TAB [Concomitant]
  3. CELLCEPT [Concomitant]
  4. PROGRAF [Concomitant]
  5. METOPROLOL TARTRATE [Concomitant]
  6. PRILOSEC [Concomitant]
  7. METHYLPREDNISOLONE [Concomitant]
  8. TYLENOL (PARACETAMOL, PSEUDOEPHEDRINE HYDROCHLORIDE) [Concomitant]
  9. BENADRYL [Concomitant]

REACTIONS (3)
  - HEADACHE [None]
  - HYPERTENSIVE CRISIS [None]
  - SERUM SICKNESS [None]
